FAERS Safety Report 13132442 (Version 1)
Quarter: 2017Q1

REPORT INFORMATION
  Report Type: Spontaneous
  Country: US (occurrence: US)
  Receive Date: 20170120
  Receipt Date: 20170120
  Transmission Date: 20170428
  Serious: No
  Sender: FDA-Public Use
  Company Number: US-TEVA-667639USA

PATIENT
  Sex: Female

DRUGS (1)
  1. HYDROCHLOROTHIAZIDE. [Suspect]
     Active Substance: HYDROCHLOROTHIAZIDE
     Indication: BLOOD PRESSURE MEASUREMENT

REACTIONS (9)
  - Back pain [Unknown]
  - Feeling abnormal [Unknown]
  - Blood pressure increased [Unknown]
  - Dizziness [Unknown]
  - Product substitution issue [Unknown]
  - Pain in extremity [Unknown]
  - Adverse event [Unknown]
  - Drug ineffective [Unknown]
  - Gait disturbance [Unknown]

NARRATIVE: CASE EVENT DATE: 2016
